FAERS Safety Report 22616108 (Version 1)
Quarter: 2023Q2

REPORT INFORMATION
  Report Type: Spontaneous
  Country: BE (occurrence: BE)
  Receive Date: 20230619
  Receipt Date: 20230619
  Transmission Date: 20230722
  Serious: Yes (Other)
  Sender: FDA-Public Use
  Company Number: BE-PFIZER INC-202300223465

PATIENT
  Age: 83 Year
  Sex: Male
  Weight: 72 kg

DRUGS (2)
  1. CARBOPLATIN [Suspect]
     Active Substance: CARBOPLATIN
     Indication: Transitional cell carcinoma
     Dosage: 4 CYCLES OF CHEMOTHERAPY
  2. GEMCITABINE HYDROCHLORIDE [Suspect]
     Active Substance: GEMCITABINE HYDROCHLORIDE
     Indication: Transitional cell carcinoma
     Dosage: 4 CYCLES OF CHEMOTHERAPY

REACTIONS (4)
  - Renal impairment [Unknown]
  - Nephrostomy [Unknown]
  - Nausea [Unknown]
  - Haematology test abnormal [Unknown]
